FAERS Safety Report 16712918 (Version 1)
Quarter: 2019Q3

REPORT INFORMATION
  Report Type: Other
  Country: NL (occurrence: NL)
  Receive Date: 20190817
  Receipt Date: 20190817
  Transmission Date: 20191004
  Serious: Yes (Other)
  Sender: FDA-Public Use
  Company Number: NL-APOTEX-2019AP020086

PATIENT
  Sex: Female

DRUGS (1)
  1. SERTRALINE [Suspect]
     Active Substance: SERTRALINE HYDROCHLORIDE
     Indication: ANXIETY
     Dosage: UNK
     Route: 065
     Dates: start: 20190415, end: 20190612

REACTIONS (5)
  - Presyncope [Not Recovered/Not Resolved]
  - Nausea [Recovered/Resolved]
  - Conjunctival haemorrhage [Unknown]
  - Dry mouth [Recovered/Resolved]
  - Impaired driving ability [Not Recovered/Not Resolved]
